FAERS Safety Report 8340186-X (Version None)
Quarter: 2012Q2

REPORT INFORMATION
  Report Type: 
  Country: None (occurrence: None)
  Receive Date: 20120507
  Receipt Date: 20120427
  Transmission Date: 20120825
  Serious: Yes (Other)
  Sender: FDA-Public Use
  Company Number: JP-BRISTOL-MYERS SQUIBB COMPANY-16229221

PATIENT
  Age: 72 Year

DRUGS (7)
  1. AMOBAN [Concomitant]
     Indication: PROPHYLAXIS
  2. ORENCIA [Suspect]
     Indication: RHEUMATOID ARTHRITIS
     Dosage: 16JUN11,02AUG11,30AUG11
     Dates: start: 20110602, end: 20110927
  3. METHOTREXATE [Suspect]
  4. EPINASTINE HYDROCHLORIDE [Concomitant]
     Indication: ALLERGY PROPHYLAXIS
  5. HALCION [Concomitant]
     Indication: PROPHYLAXIS
  6. MUCOSOLVAN [Concomitant]
     Indication: PRODUCTIVE COUGH
  7. MUCOSOLVAN [Concomitant]
     Indication: PROPHYLAXIS

REACTIONS (1)
  - PSORIASIS [None]
